FAERS Safety Report 9778306 (Version 3)
Quarter: 2014Q1

REPORT INFORMATION
  Report Type: Report from Study
  Country: CA (occurrence: CA)
  Receive Date: 20131223
  Receipt Date: 20140308
  Transmission Date: 20141002
  Serious: Yes (Other)
  Sender: FDA-Public Use
  Company Number: CA-ROCHE-1106960

PATIENT
  Age: 18 Year
  Sex: Female
  Weight: 58.2 kg

DRUGS (12)
  1. RITUXAN [Suspect]
     Indication: JUVENILE IDIOPATHIC ARTHRITIS
     Dosage: FREQUENCY: DAY 1, 15.
     Route: 042
     Dates: start: 20120815
  2. PREDNISONE [Concomitant]
     Route: 065
  3. PREDNISONE [Concomitant]
     Route: 065
  4. ARAVA [Concomitant]
  5. NAPROXEN [Concomitant]
  6. RANITIDINE [Concomitant]
  7. DIPHENHYDRAMINE HCL [Concomitant]
     Indication: PREMEDICATION
     Route: 048
     Dates: start: 20120815
  8. DIPHENHYDRAMINE HCL [Concomitant]
     Route: 048
     Dates: start: 20120828, end: 20120828
  9. ACETAMINOPHEN [Concomitant]
     Indication: PREMEDICATION
     Route: 048
     Dates: start: 20120815
  10. ACETAMINOPHEN [Concomitant]
     Route: 048
     Dates: start: 20120828, end: 20120828
  11. METHYLPREDNISOLONE [Concomitant]
     Indication: PREMEDICATION
     Route: 042
     Dates: start: 20120815
  12. METHYLPREDNISOLONE [Concomitant]
     Route: 042
     Dates: start: 20120828, end: 20120828

REACTIONS (10)
  - Presyncope [Recovered/Resolved]
  - Convulsion [Recovered/Resolved]
  - Hypotension [Not Recovered/Not Resolved]
  - Foot deformity [Recovered/Resolved]
  - Joint swelling [Recovered/Resolved]
  - Finger deformity [Recovered/Resolved]
  - Palpitations [Recovered/Resolved]
  - Arthralgia [Not Recovered/Not Resolved]
  - Therapeutic product ineffective [Unknown]
  - Arthralgia [Recovered/Resolved]
